FAERS Safety Report 4712452-8 (Version None)
Quarter: 2005Q3

REPORT INFORMATION
  Report Type: 
  Country: None (occurrence: None)
  Receive Date: 20050712
  Receipt Date: 20050602
  Transmission Date: 20060218
  Serious: Yes (Death, Life-Threatening)
  Sender: FDA-Public Use
  Company Number: PHBS2005JP08037

PATIENT
  Age: 73 Year
  Sex: Male

DRUGS (6)
  1. DIOVAN [Suspect]
     Dosage: 80 MG, QD
     Route: 048
     Dates: start: 20030801, end: 20050601
  2. LIVALO [Suspect]
     Indication: HYPERLIPIDAEMIA
     Dosage: 1 MG, QD
     Route: 048
     Dates: start: 20041027, end: 20050601
  3. ACTOS [Concomitant]
     Indication: DIABETES MELLITUS
     Dosage: 15 TO 30 MG/DAY
     Route: 048
     Dates: start: 20020101, end: 20050601
  4. ACTOS [Concomitant]
     Dosage: 30 MG, UNK
     Route: 048
     Dates: end: 20050524
  5. EPADEL [Concomitant]
     Indication: CEREBRAL INFARCTION
     Dosage: 1800 MG, UNK
     Route: 048
     Dates: start: 20020101, end: 20050601
  6. WARFARIN POTASSIUM [Concomitant]
     Indication: CEREBRAL INFARCTION
     Dosage: 2 MG, UNK
     Route: 048
     Dates: start: 20020101, end: 20050601

REACTIONS (7)
  - ALANINE AMINOTRANSFERASE INCREASED [None]
  - ASPARTATE AMINOTRANSFERASE INCREASED [None]
  - BLOOD LACTATE DEHYDROGENASE INCREASED [None]
  - C-REACTIVE PROTEIN INCREASED [None]
  - INTERSTITIAL LUNG DISEASE [None]
  - PRODUCTIVE COUGH [None]
  - PYREXIA [None]
